FAERS Safety Report 13486130 (Version 1)
Quarter: 2017Q2

REPORT INFORMATION
  Report Type: Spontaneous
  Country: US (occurrence: US)
  Receive Date: 20170426
  Receipt Date: 20170426
  Transmission Date: 20170830
  Serious: Yes (Hospitalization, Disabling)
  Sender: FDA-Public Use
  Company Number: None

PATIENT
  Age: 46 Year
  Sex: Female
  Weight: 49.95 kg

DRUGS (1)
  1. PREDNISONE 10MG TABLETS [Suspect]
     Active Substance: PREDNISONE
     Indication: CROHN^S DISEASE
     Route: 048

REACTIONS (8)
  - Insomnia [None]
  - Therapy cessation [None]
  - Hallucination, auditory [None]
  - Psychotic disorder [None]
  - Hyperhidrosis [None]
  - Delusion [None]
  - Contusion [None]
  - Post-traumatic stress disorder [None]

NARRATIVE: CASE EVENT DATE: 20110624
